FAERS Safety Report 15838424 (Version 1)
Quarter: 2019Q1

REPORT INFORMATION
  Report Type: Spontaneous
  Country: US (occurrence: US)
  Receive Date: 20190117
  Receipt Date: 20190117
  Transmission Date: 20190417
  Serious: No
  Sender: FDA-Public Use
  Company Number: US-BAYER-2019-011937

PATIENT
  Age: 75 Year
  Sex: Female
  Weight: 68 kg

DRUGS (1)
  1. MIRALAX [Suspect]
     Active Substance: POLYETHYLENE GLYCOL 3350
     Indication: CONSTIPATION
     Dosage: UNK
     Route: 065
     Dates: start: 2017, end: 201901

REACTIONS (9)
  - Nausea [Unknown]
  - Product prescribing error [Unknown]
  - Frequent bowel movements [Unknown]
  - Product use in unapproved indication [Unknown]
  - Gastroenteritis viral [Unknown]
  - Frequent bowel movements [Unknown]
  - Frequent bowel movements [Unknown]
  - Malaise [Unknown]
  - Off label use [Unknown]

NARRATIVE: CASE EVENT DATE: 201801
